FAERS Safety Report 8446101-2 (Version None)
Quarter: 2012Q2

REPORT INFORMATION
  Report Type: 
  Country: None (occurrence: None)
  Receive Date: 20120618
  Receipt Date: 20120608
  Transmission Date: 20120825
  Serious: Yes (Other)
  Sender: FDA-Public Use
  Company Number: US-ABBOTT-12P-163-0944110-00

PATIENT
  Sex: Male

DRUGS (1)
  1. HUMIRA [Suspect]
     Indication: CROHN'S DISEASE
     Dates: start: 20090311, end: 20110526

REACTIONS (15)
  - METASTATIC CARCINOMA OF THE BLADDER [None]
  - BLADDER NEOPLASM [None]
  - COLONIC POLYP [None]
  - ARTHRITIS [None]
  - SKIN ULCER [None]
  - ABDOMINAL PAIN UPPER [None]
  - JOINT EFFUSION [None]
  - ERYTHEMA [None]
  - STAPHYLOCOCCAL INFECTION [None]
  - LARGE INTESTINAL ULCER [None]
  - BLOOD URINE PRESENT [None]
  - DYSURIA [None]
  - KNEE ARTHROPLASTY [None]
  - ARTHRALGIA [None]
  - MALAISE [None]
